FAERS Safety Report 8583954-1 (Version None)
Quarter: 2012Q3

REPORT INFORMATION
  Report Type: 
  Country: None (occurrence: None)
  Receive Date: 20120810
  Receipt Date: 20120807
  Transmission Date: 20120928
  Serious: Yes (Hospitalization, Disabling, Other)
  Sender: FDA-Public Use
  Company Number: US-MERCK-1103USA00265

PATIENT

DRUGS (18)
  1. FOSAMAX [Suspect]
     Dosage: 10 MG, UNK
     Route: 048
     Dates: start: 19980521, end: 20100301
  2. METICORTEN [Concomitant]
     Dosage: 5-10
  3. VASOTEC [Concomitant]
     Dosage: 5 MG, QD
     Route: 048
  4. MK-0130 [Concomitant]
     Route: 048
  5. CENTRUM (MINERALS (UNSPECIFIED) (+) VITAMINS (UNSPECIFIED)) [Concomitant]
  6. VENTOLIN [Concomitant]
  7. PROVENTIL [Concomitant]
     Dosage: PRN
     Route: 055
  8. AZMACORT [Concomitant]
     Dosage: UNK, Q4H
  9. SEREVENT [Concomitant]
     Dosage: UNK, BID
  10. FOSAMAX [Suspect]
     Indication: OSTEOPOROSIS
     Dosage: 5 MG, QD
     Route: 048
     Dates: start: 19970927, end: 20011107
  11. MK-0805 [Concomitant]
     Dosage: 20 MG, QD
  12. FLUTICASONE PROPIONATE [Concomitant]
  13. VICODIN [Concomitant]
  14. ACCOLATE [Concomitant]
     Dosage: 20 MG, BID
  15. MEVACOR [Concomitant]
     Dosage: 40 MG, QD
     Route: 048
  16. FOSAMAX [Suspect]
     Dosage: 70 MG, QW
     Route: 048
     Dates: start: 19980521, end: 20100301
  17. FOSAMAX PLUS D [Suspect]
     Indication: OSTEOPOROSIS
     Dosage: 70/2800
     Route: 048
     Dates: start: 20060501, end: 20100101
  18. ALBUTEROL [Concomitant]
     Dosage: UNK UNK, PRN

REACTIONS (35)
  - HAEMORRHOIDS [None]
  - LIGAMENT SPRAIN [None]
  - DUPUYTREN'S CONTRACTURE [None]
  - HIATUS HERNIA [None]
  - PLEURAL EFFUSION [None]
  - DIVERTICULUM [None]
  - ARTHRALGIA [None]
  - ERECTILE DYSFUNCTION [None]
  - THYROID NEOPLASM [None]
  - THORACIC VERTEBRAL FRACTURE [None]
  - JOINT DISLOCATION [None]
  - FEMUR FRACTURE [None]
  - RHINITIS ALLERGIC [None]
  - CHRONIC OBSTRUCTIVE PULMONARY DISEASE [None]
  - RECTAL HAEMORRHAGE [None]
  - GASTROOESOPHAGEAL REFLUX DISEASE [None]
  - BACK PAIN [None]
  - GOITRE [None]
  - IMPAIRED HEALING [None]
  - DIVERTICULITIS [None]
  - ACUTE RESPIRATORY FAILURE [None]
  - ANXIETY [None]
  - WEIGHT DECREASED [None]
  - FRACTURE NONUNION [None]
  - LACERATION [None]
  - RIB FRACTURE [None]
  - LEUKOCYTOSIS [None]
  - RADICULITIS LUMBOSACRAL [None]
  - ARTHROPATHY [None]
  - MUSCULOSKELETAL CHEST PAIN [None]
  - FALL [None]
  - SPINAL COMPRESSION FRACTURE [None]
  - UMBILICAL HERNIA [None]
  - DEPRESSION [None]
  - OSTEOARTHRITIS [None]
